FAERS Safety Report 5133758-7 (Version None)
Quarter: 2006Q4

REPORT INFORMATION
  Report Type: 
  Country: None (occurrence: None)
  Receive Date: 20061024
  Receipt Date: 20061011
  Transmission Date: 20070319
  Serious: Yes (Hospitalization)
  Sender: FDA-Public Use
  Company Number: US-JNJFOC-20061003133

PATIENT
  Sex: Female
  Weight: 58.97 kg

DRUGS (5)
  1. DURAGESIC-100 [Suspect]
     Indication: PAIN
     Route: 062
  2. ACTIQ [Concomitant]
     Indication: BREAKTHROUGH PAIN
     Dosage: EVERY 3-4 HOURS
  3. AMBIEN [Concomitant]
     Indication: SLEEP DISORDER
     Route: 048
  4. KLONOPIN [Concomitant]
     Indication: CONVULSION
     Route: 048
  5. KLONOPIN [Concomitant]
     Indication: ANXIETY
     Route: 048

REACTIONS (1)
  - CONVULSION [None]
